FAERS Safety Report 5385866-3 (Version None)
Quarter: 2007Q3

REPORT INFORMATION
  Report Type: 
  Country: None (occurrence: None)
  Receive Date: 20070712
  Receipt Date: 20070711
  Transmission Date: 20080115
  Serious: Yes (Hospitalization)
  Sender: FDA-Public Use
  Company Number: HQWYE869302JUL07

PATIENT
  Age: 81 Year
  Sex: Male

DRUGS (1)
  1. CORDARONE [Suspect]
     Dosage: UNSPECIFIED

REACTIONS (4)
  - ASTHENIA [None]
  - LUNG DISORDER [None]
  - THYROID DISORDER [None]
  - WEIGHT DECREASED [None]
